FAERS Safety Report 14448088 (Version 1)
Quarter: 2018Q1

REPORT INFORMATION
  Report Type: Spontaneous
  Country: US (occurrence: US)
  Receive Date: 20180126
  Receipt Date: 20180126
  Transmission Date: 20180509
  Serious: Yes (Other)
  Sender: FDA-Public Use
  Company Number: US-MATRIXX INITIATIVES, INC.-2040868

PATIENT
  Age: 46 Year
  Sex: Female
  Weight: 70.46 kg

DRUGS (3)
  1. EPIPEN [Concomitant]
     Active Substance: EPINEPHRINE
  2. ZICAM TOTAL IMMUNE CRYSTALS [Suspect]
     Active Substance: MINERALS\VITAMINS
     Indication: SUPPLEMENTATION THERAPY
     Route: 048
  3. ZICAM TOTAL IMMUNE CRYSTALS [Suspect]
     Active Substance: MINERALS\VITAMINS
     Indication: IMMUNE SYSTEM DISORDER
     Route: 048

REACTIONS (8)
  - Urticaria [Recovered/Resolved]
  - Dizziness [Recovered/Resolved]
  - Flushing [Recovered/Resolved]
  - Diaphragmatic spasm [Recovered/Resolved]
  - Dyspnoea [Recovered/Resolved]
  - Abdominal pain upper [Recovered/Resolved]
  - Throat irritation [Recovered/Resolved]
  - Throat tightness [Recovered/Resolved]
